FAERS Safety Report 8209412-1 (Version None)
Quarter: 2012Q1

REPORT INFORMATION
  Report Type: 
  Country: None (occurrence: None)
  Receive Date: 20120314
  Receipt Date: 20120307
  Transmission Date: 20120608
  Serious: Yes (Hospitalization)
  Sender: FDA-Public Use
  Company Number: US-BAYER-2012-023556

PATIENT
  Age: 22 Year
  Sex: Female
  Weight: 94 kg

DRUGS (5)
  1. VANIQA [Concomitant]
  2. VICODIN [Concomitant]
     Dosage: 5/500 MG
     Route: 048
  3. YAZ [Suspect]
     Indication: PREMENSTRUAL SYNDROME
     Dosage: UNK
     Dates: start: 20071217
  4. YASMIN [Suspect]
     Dosage: UNK
     Dates: start: 20060313
  5. MOTRIN [Concomitant]

REACTIONS (1)
  - PULMONARY EMBOLISM [None]
